FAERS Safety Report 6752549-4 (Version None)
Quarter: 2010Q2

REPORT INFORMATION
  Report Type: 
  Country: None (occurrence: None)
  Receive Date: 20100602
  Receipt Date: 20100519
  Transmission Date: 20101027
  Serious: Yes (Hospitalization)
  Sender: FDA-Public Use
  Company Number: BR-MEDIMMUNE-MEDI-0011033

PATIENT
  Sex: Male
  Weight: 9.95 kg

DRUGS (10)
  1. SYNAGIS [Suspect]
     Route: 030
     Dates: start: 20090910, end: 20090910
  2. SYNAGIS [Suspect]
     Indication: BRONCHIOLITIS
     Route: 030
     Dates: start: 20091001, end: 20091001
  3. SYNAGIS [Suspect]
     Indication: PNEUMONIA
  4. SYNAGIS [Suspect]
     Indication: BRONCHOPULMONARY DYSPLASIA
  5. INHALER [Concomitant]
  6. BUDESONIDE [Concomitant]
     Dosage: 2 SPRAYS IN MORNING, 3 SPRAYS IN EVENING
     Route: 045
     Dates: start: 20090503
  7. SALBUTAMOL [Concomitant]
     Route: 045
     Dates: start: 20100101
  8. FERROUS SULFATE TAB [Concomitant]
     Route: 048
     Dates: start: 20090601
  9. FERROUS SULFATE TAB [Concomitant]
  10. VITAMIN TAB [Concomitant]

REACTIONS (6)
  - BRONCHIOLITIS [None]
  - BRONCHOPULMONARY DYSPLASIA [None]
  - INFLUENZA [None]
  - NASOPHARYNGITIS [None]
  - PNEUMONIA [None]
  - RESPIRATORY TRACT CONGESTION [None]
